FAERS Safety Report 9999070 (Version 1)
Quarter: 2014Q1

REPORT INFORMATION
  Report Type: Spontaneous
  Country: US (occurrence: None)
  Receive Date: 20140311
  Receipt Date: 20140311
  Transmission Date: 20141002
  Serious: Yes (Other)
  Sender: FDA-Public Use
  Company Number: None

PATIENT
  Age: 31 Year
  Sex: Male
  Weight: 77.11 kg

DRUGS (2)
  1. DULOXETINE [Suspect]
     Dosage: 2 PILLS MORNING, 1 PILL EVENING
     Route: 048
     Dates: start: 20140307, end: 20140308
  2. DULOXETINE [Suspect]
     Indication: DEPRESSION
     Dosage: 2 PILLS MORNING, 1 PILL EVENING
     Route: 048
     Dates: start: 20140307, end: 20140308

REACTIONS (6)
  - Product substitution issue [None]
  - Abdominal pain upper [None]
  - Nausea [None]
  - Pruritus generalised [None]
  - Syncope [None]
  - Abdominal pain upper [None]
